FAERS Safety Report 4919487-0 (Version None)
Quarter: 2006Q1

REPORT INFORMATION
  Report Type: 
  Country: None (occurrence: None)
  Receive Date: 20060222
  Receipt Date: 20050317
  Transmission Date: 20060701
  Serious: Yes (Hospitalization)
  Sender: FDA-Public Use
  Company Number: US-MERCK-0503USA03418

PATIENT
  Age: 58 Year
  Sex: Male
  Weight: 132 kg

DRUGS (18)
  1. VIOXX [Suspect]
     Indication: BACK PAIN
     Route: 048
     Dates: start: 20000501, end: 20000623
  2. VIOXX [Suspect]
     Route: 048
     Dates: start: 20010326, end: 20040127
  3. MEVACOR [Concomitant]
     Route: 065
  4. FLONASE [Concomitant]
     Route: 065
  5. LISINOPRIL [Concomitant]
     Route: 065
  6. TAGAMET [Concomitant]
     Route: 065
  7. ATENOLOL [Concomitant]
     Route: 065
  8. PLAVIX [Concomitant]
     Route: 065
  9. NITROSTAT [Concomitant]
     Route: 065
  10. LASIX [Concomitant]
     Route: 065
  11. NEURONTIN [Concomitant]
     Route: 065
  12. SKELAXIN [Concomitant]
     Route: 065
  13. ZANAFLEX [Concomitant]
     Route: 065
  14. DAYPRO [Concomitant]
     Route: 065
  15. PROCARDIA [Concomitant]
     Route: 065
  16. ASPIRIN [Concomitant]
     Route: 065
  17. BENADRYL [Concomitant]
     Route: 065
  18. ULTRAM [Concomitant]
     Route: 065

REACTIONS (3)
  - ACUTE MYOCARDIAL INFARCTION [None]
  - ANGINA PECTORIS [None]
  - DRUG INEFFECTIVE [None]
